FAERS Safety Report 9421727 (Version 1)
Quarter: 2013Q3

REPORT INFORMATION
  Report Type: Spontaneous
  Country: CA (occurrence: CA)
  Receive Date: 20130726
  Receipt Date: 20130726
  Transmission Date: 20140515
  Serious: Yes (Other)
  Sender: FDA-Public Use
  Company Number: CA-GE HEALTHCARE MEDICAL DIAGNOSTICS-VISP-PR-1307S-0736

PATIENT
  Age: 45 Year
  Sex: Female

DRUGS (2)
  1. VISIPAQUE [Suspect]
     Indication: BREAST CANCER
     Route: 042
     Dates: start: 20130717, end: 20130717
  2. VISIPAQUE [Suspect]
     Indication: DIAGNOSTIC PROCEDURE

REACTIONS (2)
  - Paraesthesia oral [Recovered/Resolved]
  - Pruritus [Recovered/Resolved]
